FAERS Safety Report 6987326-2 (Version None)
Quarter: 2010Q3

REPORT INFORMATION
  Report Type: 
  Country: None (occurrence: None)
  Receive Date: 20100827
  Receipt Date: 20100615
  Transmission Date: 20110219
  Serious: No
  Sender: FDA-Public Use
  Company Number: 014078

PATIENT

DRUGS (4)
  1. LACOSAMIDE [Suspect]
  2. TRILEPTAL [Concomitant]
  3. LAMICTAL [Concomitant]
  4. TEGRETOL [Concomitant]

REACTIONS (1)
  - DIZZINESS [None]
